FAERS Safety Report 5866606-8 (Version None)
Quarter: 2008Q3

REPORT INFORMATION
  Report Type: 
  Country: None (occurrence: None)
  Receive Date: 20080829
  Receipt Date: 20080829
  Transmission Date: 20090109
  Serious: Yes (Hospitalization)
  Sender: FDA-Public Use
  Company Number: None

PATIENT
  Sex: Male
  Weight: 109 kg

DRUGS (2)
  1. CISPLATIN [Suspect]
     Indication: TONSIL CANCER
     Dosage: 100MG/M2 IV Q4WKS
     Route: 042
     Dates: start: 20080820
  2. CETUXIMAB [Suspect]
     Indication: TONSIL CANCER
     Dosage: 250MG/M2 IV QWK
     Route: 042
     Dates: start: 20080603

REACTIONS (4)
  - ANOREXIA [None]
  - ILL-DEFINED DISORDER [None]
  - NAUSEA [None]
  - WEIGHT DECREASED [None]
